FAERS Safety Report 5756595-9 (Version None)
Quarter: 2008Q2

REPORT INFORMATION
  Report Type: 
  Country: None (occurrence: None)
  Receive Date: 20080528
  Receipt Date: 20080514
  Transmission Date: 20081010
  Serious: No
  Sender: FDA-Public Use
  Company Number: US023537

PATIENT
  Age: 39 Year
  Sex: Female
  Weight: 62.5964 kg

DRUGS (7)
  1. FENTORA [Suspect]
     Indication: BACK PAIN
     Dosage: 300 UG QID ORAL
     Route: 048
     Dates: start: 20080424, end: 20080424
  2. FENTORA [Suspect]
     Indication: PAIN IN EXTREMITY
     Dosage: 300 UG QID ORAL
     Route: 048
     Dates: start: 20080424, end: 20080424
  3. FENTORA [Suspect]
     Indication: BACK PAIN
     Dosage: 300 UG QID ORAL
     Route: 048
     Dates: start: 20080513, end: 20080513
  4. FENTORA [Suspect]
     Indication: PAIN IN EXTREMITY
     Dosage: 300 UG QID ORAL
     Route: 048
     Dates: start: 20080513, end: 20080513
  5. DURAGESIC-100 [Concomitant]
  6. ACTIQ [Concomitant]
  7. SOMA [Concomitant]

REACTIONS (3)
  - DRUG PRESCRIBING ERROR [None]
  - NAUSEA [None]
  - VOMITING [None]
